FAERS Safety Report 8376050-X (Version None)
Quarter: 2012Q2

REPORT INFORMATION
  Report Type: 
  Country: None (occurrence: None)
  Receive Date: 20120522
  Receipt Date: 20120515
  Transmission Date: 20120825
  Serious: Yes (Hospitalization, Other)
  Sender: FDA-Public Use
  Company Number: PHHY2010US67210

PATIENT
  Sex: Female
  Weight: 100.68 kg

DRUGS (18)
  1. GLEEVEC [Suspect]
     Dosage: 800 MG, DAILY
     Dates: start: 20110601
  2. GLEEVEC [Suspect]
     Dosage: 400 MG, BID
     Route: 048
  3. GINGER [Concomitant]
     Dosage: 500 MG, UNK
     Route: 048
  4. GLEEVEC [Suspect]
     Dosage: 600 MG, DAILY
     Dates: end: 20110601
  5. GLEEVEC [Suspect]
     Dosage: 400 MG, BID
     Route: 048
  6. GLEEVEC [Suspect]
     Dosage: 400 MG, UNK
     Route: 048
  7. NOVOLOG [Concomitant]
     Dosage: UNK UKN, UNK (100/ML)
     Route: 058
  8. JANUVIA [Concomitant]
     Dosage: 100 MG, UNK
     Route: 048
  9. ALLERGY [Concomitant]
     Dosage: 4 MG, UNK
     Route: 048
  10. LISINOPRIL [Concomitant]
     Dosage: 10 MG, UNK
     Route: 048
  11. MULTI-TABS [Concomitant]
     Route: 048
  12. VITAMIN D [Concomitant]
     Dosage: 50000 U, UNK
     Route: 048
  13. GLEEVEC [Suspect]
     Indication: CHRONIC MYELOID LEUKAEMIA
     Dosage: 400 MG, BID
     Route: 048
     Dates: start: 20100402
  14. LANTUS [Concomitant]
     Dosage: 100 ML, UNK
     Route: 058
  15. CINNAMON [Concomitant]
     Dosage: 500 MG, UNK
     Route: 048
  16. LASIX [Concomitant]
     Dosage: 20 MG, UNK
     Route: 048
  17. CARVEDILOL [Concomitant]
     Dosage: 12.5 MG, UNK
     Route: 048
  18. ASCORBIC ACID [Concomitant]
     Dosage: 500 MG, UNK
     Route: 048

REACTIONS (20)
  - PAIN IN EXTREMITY [None]
  - ERYTHEMA [None]
  - OSTEOARTHRITIS [None]
  - PERIORBITAL OEDEMA [None]
  - FATIGUE [None]
  - PNEUMONIA [None]
  - SWELLING FACE [None]
  - RASH [None]
  - ANAEMIA [None]
  - SWELLING [None]
  - FLUID RETENTION [None]
  - WEIGHT INCREASED [None]
  - OEDEMA PERIPHERAL [None]
  - JOINT SWELLING [None]
  - EYE SWELLING [None]
  - ARTHRALGIA [None]
  - VOMITING [None]
  - DIARRHOEA [None]
  - MUSCLE SPASMS [None]
  - NAUSEA [None]
